FAERS Safety Report 14006134 (Version 1)
Quarter: 2017Q3

REPORT INFORMATION
  Report Type: Report from Study
  Country: None (occurrence: US)
  Receive Date: 20170924
  Receipt Date: 20170924
  Transmission Date: 20171128
  Serious: Yes (Hospitalization)
  Sender: FDA-Public Use
  Company Number: US-BIOGEN-2017BI00372837

PATIENT
  Sex: Male
  Weight: 8.7 kg

DRUGS (12)
  1. RFIXFC [Suspect]
     Active Substance: EFTRENONACOG ALFA
     Route: 042
     Dates: start: 20170316, end: 20170320
  2. MORPHINE [Concomitant]
     Active Substance: MORPHINE
     Indication: PAIN
     Dosage: 1 X DOSE
     Route: 065
     Dates: start: 20170319
  3. RFIXFC [Suspect]
     Active Substance: EFTRENONACOG ALFA
     Dosage: ONCE
     Route: 042
     Dates: start: 20170314, end: 20170314
  4. OXYCODONE [Concomitant]
     Active Substance: OXYCODONE
     Indication: PAIN
     Dosage: AS NEEDED; 2 X DOSE WAS GIVEN
     Route: 065
     Dates: start: 20170319
  5. RFIXFC [Suspect]
     Active Substance: EFTRENONACOG ALFA
     Indication: PROPHYLAXIS
     Dosage: TWICE; ADDITIONAL DOSES AT TIME OF EVENT
     Route: 042
     Dates: start: 20170313, end: 20170313
  6. RFIXFC [Suspect]
     Active Substance: EFTRENONACOG ALFA
     Route: 042
     Dates: start: 20170501
  7. TYLENOL [Concomitant]
     Active Substance: ACETAMINOPHEN
     Dosage: DOSE GIVEN 4 X
     Route: 065
     Dates: start: 20170319
  8. OXYCODONE [Concomitant]
     Active Substance: OXYCODONE
     Indication: HEADACHE
     Dosage: AS NEEDED; 1 X DOSE WAS GIVEN
     Route: 065
     Dates: start: 20170318
  9. RFIXFC [Suspect]
     Active Substance: EFTRENONACOG ALFA
     Indication: FACTOR IX DEFICIENCY
     Dosage: 50 IU/KG
     Route: 042
     Dates: start: 20161019
  10. RFIXFC [Suspect]
     Active Substance: EFTRENONACOG ALFA
     Dosage: ONCE
     Route: 042
     Dates: start: 20170315, end: 20170315
  11. TYLENOL [Concomitant]
     Active Substance: ACETAMINOPHEN
     Indication: HEADACHE
     Route: 065
  12. TYLENOL [Concomitant]
     Active Substance: ACETAMINOPHEN
     Indication: PAIN
     Dosage: 1 X DOSE
     Route: 065
     Dates: start: 20170318

REACTIONS (1)
  - Subdural haematoma [Recovered/Resolved]

NARRATIVE: CASE EVENT DATE: 20170313
